FAERS Safety Report 6448315-X (Version None)
Quarter: 2009Q4

REPORT INFORMATION
  Report Type: 
  Country: None (occurrence: None)
  Receive Date: 20091120
  Receipt Date: 20091112
  Transmission Date: 20100525
  Serious: Yes (Other)
  Sender: FDA-Public Use
  Company Number: PHEH2009US13317

PATIENT
  Sex: Female

DRUGS (9)
  1. EXJADE [Suspect]
     Indication: APLASTIC ANAEMIA
     Dosage: 2500 MG, DAILY
     Route: 048
     Dates: start: 20090903
  2. EXJADE [Suspect]
     Indication: IRON OVERLOAD
     Dosage: 2500 MG, DAILY
     Route: 048
     Dates: start: 20090921
  3. FOLIC ACID [Concomitant]
  4. ZOLOFT [Concomitant]
  5. VFEND [Concomitant]
  6. VITAMIN D [Concomitant]
  7. NORTREL                                 /BRA/ [Concomitant]
  8. NEUPOGEN [Concomitant]
  9. TUMS [Concomitant]

REACTIONS (3)
  - BONE MARROW TRANSPLANT [None]
  - RASH [None]
  - TREATMENT NONCOMPLIANCE [None]
